FAERS Safety Report 7042001-3 (Version None)
Quarter: 2010Q4

REPORT INFORMATION
  Report Type: 
  Country: None (occurrence: None)
  Receive Date: 20101013
  Receipt Date: 20081230
  Transmission Date: 20110411
  Serious: No
  Sender: FDA-Public Use
  Company Number: US-ASTRAZENECA-2008UW28956

PATIENT
  Sex: Female

DRUGS (6)
  1. SYMBICORT [Suspect]
     Indication: ASTHMA
     Route: 055
  2. SEROQUEL [Concomitant]
  3. EFFEXOR [Concomitant]
  4. KLONOPIN [Concomitant]
  5. LAMICTAL [Concomitant]
  6. LEVOTHYROXINE [Concomitant]

REACTIONS (3)
  - DECREASED APPETITE [None]
  - NAUSEA [None]
  - WEIGHT DECREASED [None]
